FAERS Safety Report 8899732 (Version 1)
Quarter: 2012Q4

REPORT INFORMATION
  Report Type: 
  Country: US (occurrence: US)
  Receive Date: 20121108
  Receipt Date: 20121108
  Transmission Date: 20130627
  Serious: No
  Sender: FDA-Public Use
  Company Number: US-AMGEN-USASP2012031909

PATIENT
  Sex: Female
  Weight: 81.63 kg

DRUGS (6)
  1. ENBREL [Suspect]
     Indication: PRODUCT USED FOR UNKNOWN INDICATION
     Dosage: 50 mg, qwk
  2. GLUCOPHAGE [Concomitant]
     Dosage: 500 mg, UNK
  3. ZESTRIL [Concomitant]
     Dosage: 2.5 mg, UNK
  4. ALLOPURINOL [Concomitant]
     Dosage: 100 mg, UNK
  5. ACTOS [Concomitant]
     Dosage: 15 mg, UNK
  6. ZETIA [Concomitant]
     Dosage: 10 mg, UNK

REACTIONS (2)
  - Skin disorder [Unknown]
  - Inappropriate schedule of drug administration [Unknown]
